FAERS Safety Report 8430476-4 (Version None)
Quarter: 2012Q2

REPORT INFORMATION
  Report Type: 
  Country: None (occurrence: None)
  Receive Date: 20120606
  Receipt Date: 20120606
  Transmission Date: 20120825
  Serious: Yes (Life-Threatening, Hospitalization)
  Sender: FDA-Public Use
  Company Number: None

PATIENT
  Age: 63 Year
  Sex: Male
  Weight: 133.6 kg

DRUGS (1)
  1. LISINOPRIL [Suspect]
     Indication: HYPERTENSION
     Dosage: 5 MG EVERY DAY PO
     Route: 048
     Dates: start: 19951124, end: 20120601

REACTIONS (6)
  - COUGH [None]
  - WHEEZING [None]
  - PHARYNGEAL OEDEMA [None]
  - HAEMOPTYSIS [None]
  - DYSPNOEA [None]
  - ANGIOEDEMA [None]
